FAERS Safety Report 5901308-0 (Version None)
Quarter: 2008Q3

REPORT INFORMATION
  Report Type: 
  Country: None (occurrence: None)
  Receive Date: 20080929
  Receipt Date: 20080926
  Transmission Date: 20090109
  Serious: Yes (Death)
  Sender: FDA-Public Use
  Company Number: JP-BAYER-200812249BYL

PATIENT
  Age: 90 Year
  Sex: Female
  Weight: 53 kg

DRUGS (2)
  1. CIPROXAN-I.V. [Suspect]
     Indication: PERITONITIS
     Dosage: TOTAL DAILY DOSE: 600 MG  UNIT DOSE: 300 MG
     Route: 041
     Dates: start: 20080402, end: 20080415
  2. SOLYUGEN F [Concomitant]
     Indication: PERITONITIS
     Dosage: TOTAL DAILY DOSE: 1000 ML
     Route: 041
     Dates: start: 20080402, end: 20080415

REACTIONS (1)
  - DEATH [None]
